FAERS Safety Report 14952144 (Version 14)
Quarter: 2022Q4

REPORT INFORMATION
  Report Type: Report from Study
  Country: GB (occurrence: GB)
  Receive Date: 20180530
  Receipt Date: 20221129
  Transmission Date: 20230112
  Serious: Yes (Hospitalization)
  Sender: FDA-Public Use
  Company Number: GB-ROCHE-1588876

PATIENT
  Age: 43 Year
  Sex: Female
  Weight: 80.6 kg

DRUGS (34)
  1. PACLITAXEL [Suspect]
     Active Substance: PACLITAXEL
     Indication: Breast cancer metastatic
     Dosage: 192.5 MG, EVERY 3 WEEKS (MOST RECENT DOSE RECEIVED ON 22/05/2015)
     Route: 042
     Dates: start: 20150226, end: 20150522
  2. ADO-TRASTUZUMAB EMTANSINE [Suspect]
     Active Substance: ADO-TRASTUZUMAB EMTANSINE
     Indication: Breast cancer metastatic
     Dosage: 290 MG, EVERY 3 WEEKS
     Route: 042
     Dates: start: 20150604, end: 20150806
  3. PERTUZUMAB [Suspect]
     Active Substance: PERTUZUMAB
     Indication: Breast cancer metastatic
     Dosage: 840 MG, EVERY 3 WEEKS
     Route: 042
     Dates: start: 20150226
  4. PERTUZUMAB [Suspect]
     Active Substance: PERTUZUMAB
     Dosage: 420 MG, WEEKLY
     Route: 042
     Dates: end: 20150508
  5. TRASTUZUMAB [Suspect]
     Active Substance: TRASTUZUMAB
     Indication: Breast cancer metastatic
     Dosage: 600 MG, EVERY 3 WEEKS
     Route: 058
     Dates: start: 20150226, end: 20150508
  6. TRASTUZUMAB [Suspect]
     Active Substance: TRASTUZUMAB
     Dosage: 290 MG
     Route: 042
     Dates: start: 20150604, end: 20150806
  7. HYALURONIDASE (HUMAN RECOMBINANT) [Concomitant]
     Active Substance: HYALURONIDASE (HUMAN RECOMBINANT)
     Indication: Breast cancer metastatic
     Dosage: 600 MG, EVERY 3 WEEKS
     Route: 058
     Dates: start: 20150226, end: 20150508
  8. ADENOSINE [Concomitant]
     Active Substance: ADENOSINE
     Dosage: UNK
     Route: 042
     Dates: start: 20150808, end: 20150808
  9. BISOPROLOL [Concomitant]
     Active Substance: BISOPROLOL
     Dosage: UNK
     Route: 065
     Dates: start: 201504, end: 20150810
  10. BISOPROLOL [Concomitant]
     Active Substance: BISOPROLOL
     Dosage: 5 MG, 1X/DAY
     Route: 048
     Dates: start: 20150811, end: 20150812
  11. BISOPROLOL [Concomitant]
     Active Substance: BISOPROLOL
     Dosage: 5 MG, 1X/DAY
     Route: 048
     Dates: start: 20150815
  12. CHLORPHENIRAMINE MALEATE [Concomitant]
     Active Substance: CHLORPHENIRAMINE MALEATE
     Dosage: 10 MG, SINGLE (ONCE)
     Route: 042
     Dates: start: 20150226, end: 20150806
  13. DALTEPARIN [Concomitant]
     Active Substance: DALTEPARIN
     Dosage: 15000 IU, 1X/DAY
     Route: 058
     Dates: start: 201504
  14. DEXAMETHASONE [Concomitant]
     Active Substance: DEXAMETHASONE
     Indication: Confusional state
     Dosage: UNK UNK, 1X/DAY
     Route: 048
     Dates: start: 201502, end: 20150823
  15. DEXAMETHASONE [Concomitant]
     Active Substance: DEXAMETHASONE
     Dosage: UNK
     Route: 042
     Dates: start: 20150823, end: 20150823
  16. DOXYCYCLINE [Concomitant]
     Active Substance: DOXYCYCLINE
     Indication: Malaise
     Dosage: UNK UNK, 1X/DAY
     Route: 065
     Dates: start: 201505
  17. DOXYCYCLINE [Concomitant]
     Active Substance: DOXYCYCLINE
     Dosage: UNK
     Route: 048
     Dates: start: 20150603, end: 20150608
  18. GRANISETRON [Concomitant]
     Active Substance: GRANISETRON
     Dosage: 1 MG, SINGLE (ONCE)
     Route: 065
     Dates: start: 20150226, end: 20150806
  19. HYDROCORTISONE [Concomitant]
     Active Substance: HYDROCORTISONE
     Dosage: 100 MG, SINGLE (ONCE)
     Route: 042
     Dates: start: 20150226, end: 20150806
  20. LACTULOSE [Concomitant]
     Active Substance: LACTULOSE
     Dosage: 15 ML, UNK
     Route: 048
     Dates: start: 20150127, end: 20150801
  21. LORAZEPAM [Concomitant]
     Active Substance: LORAZEPAM
     Dosage: 1 MG, UNK
     Route: 048
     Dates: start: 201502
  22. METOCLOPRAMIDE [Concomitant]
     Active Substance: METOCLOPRAMIDE
     Dosage: 10 MG, 3X/DAY
     Route: 048
     Dates: start: 20150226, end: 201508
  23. MORPHINE SULFATE [Concomitant]
     Active Substance: MORPHINE SULFATE
     Dosage: 5 ML, UNK
     Route: 048
     Dates: start: 201502
  24. ONDANSETRON [Concomitant]
     Active Substance: ONDANSETRON
     Dosage: 8 MBQ, 2X/DAY
     Route: 048
     Dates: start: 20150226, end: 20150424
  25. ONDANSETRON [Concomitant]
     Active Substance: ONDANSETRON
     Dosage: 48 MG
     Route: 065
     Dates: start: 201502
  26. OXYGEN [Concomitant]
     Active Substance: OXYGEN
     Dosage: UNK (INHALANT)
     Route: 065
     Dates: start: 201502
  27. OXYGEN [Concomitant]
     Active Substance: OXYGEN
     Dosage: 8 L, UNK (INHALANT)
     Route: 055
     Dates: start: 20150410
  28. ACETAMINOPHEN [Concomitant]
     Active Substance: ACETAMINOPHEN
     Indication: Headache
     Dosage: 2000 MG, UNK
     Route: 048
     Dates: start: 201502
  29. ACETAMINOPHEN [Concomitant]
     Active Substance: ACETAMINOPHEN
     Dosage: 1 G, 4X/DAY
     Route: 048
     Dates: start: 20150823, end: 20150825
  30. ALBUTEROL [Concomitant]
     Active Substance: ALBUTEROL
     Indication: Malaise
     Dosage: 2.5 MG, UNK (NEBULIZED)
     Route: 065
     Dates: start: 201504
  31. ALBUTEROL [Concomitant]
     Active Substance: ALBUTEROL
     Dosage: UNK (INHALATION)
     Route: 065
     Dates: start: 20150602
  32. SENNA [Concomitant]
     Active Substance: SENNA LEAF\SENNOSIDES\SENNOSIDES A AND B
     Dosage: 7.5 MG, UNK
     Route: 048
     Dates: start: 201504
  33. TRAMADOL [Concomitant]
     Active Substance: TRAMADOL
     Dosage: 50 MG, UNK
     Route: 048
     Dates: start: 201502
  34. ZOPICLONE [Concomitant]
     Active Substance: ZOPICLONE
     Dosage: 3.75 MG, UNK
     Route: 048
     Dates: start: 201502

REACTIONS (17)
  - Supraventricular tachycardia [Recovered/Resolved with Sequelae]
  - Tachycardia [Recovered/Resolved with Sequelae]
  - Dizziness [Not Recovered/Not Resolved]
  - Nausea [Recovered/Resolved]
  - Lower respiratory tract infection [Recovered/Resolved with Sequelae]
  - Pneumonia [Not Recovered/Not Resolved]
  - Dyspnoea [Not Recovered/Not Resolved]
  - Malaise [Not Recovered/Not Resolved]
  - Confusional state [Not Recovered/Not Resolved]
  - Depressed mood [Not Recovered/Not Resolved]
  - Dry mouth [Not Recovered/Not Resolved]
  - Dyspepsia [Not Recovered/Not Resolved]
  - Rash [Not Recovered/Not Resolved]
  - Headache [Not Recovered/Not Resolved]
  - Vomiting [Unknown]
  - Incontinence [Not Recovered/Not Resolved]
  - Nausea [Recovered/Resolved]

NARRATIVE: CASE EVENT DATE: 20150502
